FAERS Safety Report 4520941-4 (Version None)
Quarter: 2004Q4

REPORT INFORMATION
  Report Type: 
  Country: None (occurrence: None)
  Receive Date: 20041208
  Receipt Date: 20041102
  Transmission Date: 20050328
  Serious: Yes (Other)
  Sender: FDA-Public Use
  Company Number: PHNU2004DE03721

PATIENT
  Sex: Male

DRUGS (2)
  1. SOLIAN [Suspect]
     Dosage: UNKNOWN
     Route: 048
     Dates: start: 20041001
  2. CLOZARIL [Suspect]
     Indication: PSYCHOTIC DISORDER
     Dosage: UP TO 425MG/DAY
     Route: 048
     Dates: start: 20040101

REACTIONS (6)
  - BLOOD LACTATE DEHYDROGENASE INCREASED [None]
  - C-REACTIVE PROTEIN INCREASED [None]
  - GAMMA-GLUTAMYLTRANSFERASE INCREASED [None]
  - HEPATIC ENZYME INCREASED [None]
  - HEPATITIS C [None]
  - TRANSAMINASES INCREASED [None]
